FAERS Safety Report 8773827 (Version 5)
Quarter: 2013Q1

REPORT INFORMATION
  Report Type: Report from Study
  Country: US (occurrence: US)
  Receive Date: 20120907
  Receipt Date: 20130130
  Transmission Date: 20140127
  Serious: Yes (Other)
  Sender: FDA-Public Use
  Company Number: US-ACTELION-A-NJ2012-70983

PATIENT
  Age: 79 Year
  Sex: Female
  Weight: 48.98 kg

DRUGS (4)
  1. TRACLEER [Suspect]
     Indication: PULMONARY ARTERIAL HYPERTENSION
     Dosage: 125 MG, BID
     Route: 048
     Dates: start: 20081125
  2. TRACLEER [Suspect]
     Dosage: 62.5 MG, BID
     Route: 048
     Dates: end: 20081124
  3. FUROSEMIDE [Concomitant]
  4. ASPIRIN [Concomitant]

REACTIONS (6)
  - Cardiac pacemaker insertion [Unknown]
  - Exercise tolerance decreased [Unknown]
  - Cough [Unknown]
  - Asthenia [Unknown]
  - Sleep apnoea syndrome [Unknown]
  - Fatigue [Unknown]
